FAERS Safety Report 23248044 (Version 1)
Quarter: 2023Q4

REPORT INFORMATION
  Report Type: Other
  Country: US (occurrence: US)
  Receive Date: 20231130
  Receipt Date: 20231130
  Transmission Date: 20240110
  Serious: Yes (Death, Hospitalization, Other)
  Sender: FDA-Public Use
  Company Number: US-Invatech-000315

PATIENT
  Age: 60 Year
  Sex: Male

DRUGS (4)
  1. AMANTADINE [Suspect]
     Active Substance: AMANTADINE
     Indication: Hereditary ataxia
  2. RILUZOLE [Concomitant]
     Active Substance: RILUZOLE
     Indication: Hereditary ataxia
     Dosage: 100 MG DAILY
  3. AMANTADINE [Suspect]
     Active Substance: AMANTADINE
     Indication: Hereditary ataxia
     Dosage: 400 MG DAILY
  4. AMANTADINE [Suspect]
     Active Substance: AMANTADINE
     Indication: Hereditary ataxia
     Dosage: 400 MG DAILY

REACTIONS (12)
  - Withdrawal syndrome [Fatal]
  - Pneumonia aspiration [Fatal]
  - Urinary tract infection [Fatal]
  - Odynophagia [Fatal]
  - Dysphagia [Fatal]
  - Ataxia [Fatal]
  - Dysarthria [Fatal]
  - Dysphonia [Fatal]
  - Dysmetria [Fatal]
  - Dysdiadochokinesis [Fatal]
  - Gaze palsy [Fatal]
  - Acute respiratory failure [Fatal]
